FAERS Safety Report 9259963 (Version 2)
Quarter: 2013Q2

REPORT INFORMATION
  Report Type: Spontaneous
  Country: CN (occurrence: CN)
  Receive Date: 20130429
  Receipt Date: 20130515
  Transmission Date: 20140414
  Serious: Yes (Other)
  Sender: FDA-Public Use
  Company Number: CN-JNJFOC-20130412598

PATIENT
  Age: 35 Year
  Sex: Male

DRUGS (2)
  1. NIZORAL [Suspect]
     Indication: FUNGAL SKIN INFECTION
     Route: 048
     Dates: start: 20130413, end: 20130418
  2. NIZORAL [Suspect]
     Indication: FUNGAL SKIN INFECTION
     Route: 048

REACTIONS (7)
  - Hepatitis B e antibody positive [Unknown]
  - Hepatitis B surface antigen positive [Unknown]
  - Hepatitis B core antibody positive [Unknown]
  - Abdominal pain [Recovered/Resolved]
  - Dizziness [Recovered/Resolved]
  - Abdominal distension [Recovered/Resolved]
  - Lymph node pain [Recovered/Resolved]
